FAERS Safety Report 8572411 (Version 2)
Quarter: 2013Q2

REPORT INFORMATION
  Report Type: Spontaneous
  Country: US (occurrence: US)
  Receive Date: 20120521
  Receipt Date: 20130429
  Transmission Date: 20140414
  Serious: Yes (Other)
  Sender: FDA-Public Use
  Company Number: CHPA2012US010550

PATIENT
  Age: 64 Year
  Sex: Female

DRUGS (3)
  1. EXCEDRIN MIGRAINE [Suspect]
     Indication: FIBROMYALGIA
     Dosage: 4 DF, QD 3-4 TIMES A WEEK
     Route: 048
     Dates: start: 2002
  2. EXCEDRIN MIGRAINE [Suspect]
     Indication: MIGRAINE
  3. ALEVE                              /00256202/ [Concomitant]
     Indication: FIBROMYALGIA
     Dosage: 2 DF, QD PRN
     Dates: start: 201202

REACTIONS (6)
  - Drug dependence [Unknown]
  - Gastrooesophageal reflux disease [Not Recovered/Not Resolved]
  - Hiatus hernia [Not Recovered/Not Resolved]
  - Arthritis [Not Recovered/Not Resolved]
  - Off label use [Unknown]
  - Overdose [Unknown]
